FAERS Safety Report 9104450 (Version 6)
Quarter: 2014Q3

REPORT INFORMATION
  Report Type: Spontaneous
  Country: US (occurrence: US)
  Receive Date: 20130220
  Receipt Date: 20140827
  Transmission Date: 20150326
  Serious: Yes (Hospitalization, Disabling, Other)
  Sender: FDA-Public Use
  Company Number: US-009507513-1202USA02295

PATIENT
  Sex: Female
  Weight: 62.59 kg

DRUGS (7)
  1. METHOTREXATE [Concomitant]
     Active Substance: METHOTREXATE
     Indication: RHEUMATOID ARTHRITIS
     Dosage: 2.5 MG, QW
  2. CELEBREX [Concomitant]
     Active Substance: CELECOXIB
     Indication: RHEUMATOID ARTHRITIS
     Dosage: 200 MG, QD
     Route: 048
  3. PERCOCET [Concomitant]
     Active Substance: ACETAMINOPHEN\OXYCODONE HYDROCHLORIDE
     Indication: RHEUMATOID ARTHRITIS
     Dosage: UNK, PRN
  4. FOSAMAX [Suspect]
     Active Substance: ALENDRONATE SODIUM
     Indication: OSTEOPOROSIS
  5. FOSAMAX [Suspect]
     Active Substance: ALENDRONATE SODIUM
     Indication: RHEUMATOID ARTHRITIS
     Dosage: 70 MG, UNK
     Route: 048
     Dates: start: 2003
  6. ALENDRONATE SODIUM. [Suspect]
     Active Substance: ALENDRONATE SODIUM
     Dosage: 70 MG, UNK
     Route: 048
     Dates: start: 20080617, end: 20090720
  7. METHYLPREDNISOLONE [Concomitant]
     Active Substance: METHYLPREDNISOLONE
     Indication: RHEUMATOID ARTHRITIS
     Dosage: 4 MG, QD
     Route: 048

REACTIONS (35)
  - Back disorder [Unknown]
  - Intervertebral disc protrusion [Unknown]
  - Postoperative wound infection [Unknown]
  - Osteomyelitis [Unknown]
  - Fracture [Unknown]
  - Intervertebral disc degeneration [Unknown]
  - Neurological examination abnormal [Unknown]
  - Thrombocytopenia [Unknown]
  - Muscle spasms [Unknown]
  - Neurostimulator implantation [Unknown]
  - Muscular weakness [Unknown]
  - Back pain [Unknown]
  - Gastrooesophageal reflux disease [Unknown]
  - Hypertension [Not Recovered/Not Resolved]
  - Device failure [Recovering/Resolving]
  - Debridement [Unknown]
  - Off label use [Unknown]
  - Internal fixation of fracture [Unknown]
  - Vertebral foraminal stenosis [Unknown]
  - Spondylolisthesis [Unknown]
  - Knee deformity [Unknown]
  - Alopecia totalis [Unknown]
  - Back pain [Not Recovered/Not Resolved]
  - Intervertebral disc operation [Unknown]
  - Femur fracture [Not Recovered/Not Resolved]
  - Staphylococcal infection [Unknown]
  - Medical device removal [Unknown]
  - Osteopenia [Unknown]
  - Intervertebral disc operation [Unknown]
  - Nerve root compression [Unknown]
  - Arthritis [Unknown]
  - Myocardial infarction [Unknown]
  - Lumbar spinal stenosis [Unknown]
  - Radiculopathy [Unknown]
  - Pain in extremity [Unknown]

NARRATIVE: CASE EVENT DATE: 20070103
